FAERS Safety Report 7170970-X (Version None)
Quarter: 2010Q4

REPORT INFORMATION
  Report Type: 
  Country: None (occurrence: None)
  Receive Date: 20101217
  Receipt Date: 20101214
  Transmission Date: 20110411
  Serious: Yes (Life-Threatening)
  Sender: FDA-Public Use
  Company Number: US-MERCK-1012USA00435

PATIENT
  Age: 27 Year
  Sex: Male
  Weight: 68 kg

DRUGS (4)
  1. SINGULAIR [Suspect]
     Indication: ASTHMA
     Route: 048
     Dates: start: 19980101, end: 20060101
  2. SINGULAIR [Suspect]
     Route: 048
     Dates: start: 20081215, end: 20090101
  3. SINGULAIR [Suspect]
     Indication: MULTIPLE ALLERGIES
     Route: 048
     Dates: start: 19980101, end: 20060101
  4. SINGULAIR [Suspect]
     Route: 048
     Dates: start: 20081215, end: 20090101

REACTIONS (3)
  - DEPRESSION [None]
  - DRUG DEPENDENCE [None]
  - SUICIDAL IDEATION [None]
